FAERS Safety Report 19271588 (Version 2)
Quarter: 2021Q3

REPORT INFORMATION
  Report Type: Report from Study
  Country: US (occurrence: US)
  Receive Date: 20210518
  Receipt Date: 20210915
  Transmission Date: 20211014
  Serious: No
  Sender: FDA-Public Use
  Company Number: US-TAKEDA-2021TUS030774

PATIENT
  Age: 87 Year
  Sex: Female
  Weight: 48 kg

DRUGS (3)
  1. BRIGATINIB [Suspect]
     Active Substance: BRIGATINIB
     Dosage: 30 MILLIGRAM, QD
     Route: 065
  2. BRIGATINIB [Suspect]
     Active Substance: BRIGATINIB
     Indication: LUNG NEOPLASM MALIGNANT
     Dosage: 60 MILLIGRAM, QD
     Route: 065
     Dates: start: 20210119
  3. COVID?19 VACCINE NOS. [Suspect]
     Active Substance: COVID-19 VACCINE NOS
     Indication: IMMUNISATION
     Dosage: UNK
     Route: 065
     Dates: start: 20210901, end: 20210901

REACTIONS (7)
  - Illness [Unknown]
  - Myalgia [Unknown]
  - Drug tolerance decreased [Unknown]
  - COVID-19 immunisation [Unknown]
  - Pyrexia [Recovering/Resolving]
  - Fatigue [Recovering/Resolving]
  - Feeling cold [Recovering/Resolving]

NARRATIVE: CASE EVENT DATE: 202102
